FAERS Safety Report 4369463-4 (Version None)
Quarter: 2004Q2

REPORT INFORMATION
  Report Type: 
  Country: None (occurrence: None)
  Receive Date: 20040527
  Receipt Date: 20040518
  Transmission Date: 20050107
  Serious: No
  Sender: FDA-Public Use
  Company Number: 2003UW14435

PATIENT
  Age: 60 Year
  Sex: Female
  Weight: 65.7716 kg

DRUGS (4)
  1. ARIMIDEX [Suspect]
     Indication: BREAST CANCER
     Dosage: 1 MG PO
     Route: 048
     Dates: start: 20011101
  2. FOSAMAX [Suspect]
     Dates: start: 20011101
  3. CALCIUM [Concomitant]
  4. ASPIRIN [Concomitant]

REACTIONS (6)
  - BLOOD LACTATE DEHYDROGENASE INCREASED [None]
  - HAEMOLYTIC ANAEMIA [None]
  - RETICULOCYTE COUNT INCREASED [None]
  - RHEUMATOID ARTHRITIS [None]
  - SPLENOMEGALY [None]
  - WEIGHT DECREASED [None]
